FAERS Safety Report 21659228 (Version 1)
Quarter: 2022Q4

REPORT INFORMATION
  Report Type: Spontaneous
  Country: US (occurrence: None)
  Receive Date: 20221129
  Receipt Date: 20221129
  Transmission Date: 20230113
  Serious: Yes (Death)
  Sender: FDA-Public Use
  Company Number: None

PATIENT
  Sex: Male
  Weight: 72.3 kg

DRUGS (6)
  1. CYCLOPHOSPHAMIDE [Suspect]
     Active Substance: CYCLOPHOSPHAMIDE
     Dates: end: 20220612
  2. DOXORUBICIN HYDROCHLORIDE [Suspect]
     Active Substance: DOXORUBICIN HYDROCHLORIDE
     Dates: end: 20220612
  3. FILGRASTIM [Suspect]
     Active Substance: FILGRASTIM
     Dates: end: 20220619
  4. PREDNISONE [Suspect]
     Active Substance: PREDNISONE
     Dates: end: 20220615
  5. RITUXIMAB [Suspect]
     Active Substance: RITUXIMAB
     Dates: end: 20220612
  6. VINCRISTINE SULFATE [Suspect]
     Active Substance: VINCRISTINE SULFATE
     Dates: end: 20220612

REACTIONS (12)
  - Wound [None]
  - Thrombosis [None]
  - Toe amputation [None]
  - Peripheral artery stenosis [None]
  - Atelectasis [None]
  - Pneumonia aspiration [None]
  - Atrial fibrillation [None]
  - Haemoglobin decreased [None]
  - Haematuria [None]
  - Platelet count decreased [None]
  - Confusional state [None]
  - Decubitus ulcer [None]

NARRATIVE: CASE EVENT DATE: 20220625
